FAERS Safety Report 21364491 (Version 1)
Quarter: 2022Q3

REPORT INFORMATION
  Report Type: Spontaneous
  Country: MT (occurrence: MT)
  Receive Date: 20220922
  Receipt Date: 20220922
  Transmission Date: 20221027
  Serious: Yes (Death, Other)
  Sender: FDA-Public Use
  Company Number: MT-SLATE RUN PHARMACEUTICALS-22MT001331

PATIENT

DRUGS (4)
  1. VANCOMYCIN HYDROCHLORIDE [Suspect]
     Active Substance: VANCOMYCIN HYDROCHLORIDE
     Indication: Beta haemolytic streptococcal infection
     Dosage: UNK
     Route: 042
  2. INSULIN NOS [Concomitant]
     Active Substance: INSULIN NOS
     Indication: Type 2 diabetes mellitus
     Dosage: TREATMENT OPTIMIZATION
  3. INSULIN NOS [Concomitant]
     Active Substance: INSULIN NOS
     Indication: Hyperosmolar state
  4. CEFTRIAXONE [Concomitant]
     Active Substance: CEFTRIAXONE
     Indication: Beta haemolytic streptococcal infection
     Route: 042

REACTIONS (7)
  - Septic shock [Fatal]
  - Disseminated intravascular coagulation [Fatal]
  - Septic embolus [Unknown]
  - Atrioventricular block [Unknown]
  - Postoperative wound infection [Unknown]
  - Wound dehiscence [Unknown]
  - Acute kidney injury [Fatal]
